FAERS Safety Report 15940738 (Version 1)
Quarter: 2019Q1

REPORT INFORMATION
  Report Type: Spontaneous
  Country: US (occurrence: US)
  Receive Date: 20190208
  Receipt Date: 20190208
  Transmission Date: 20190417
  Serious: No
  Sender: FDA-Public Use
  Company Number: US-PFIZER INC-2019058641

PATIENT
  Age: 67 Year
  Sex: Female

DRUGS (1)
  1. SPIRONOLACTONE. [Suspect]
     Active Substance: SPIRONOLACTONE
     Dosage: 5 DF, DAILY (NOW 2 TABS IN AM +3RD TAB PM)

REACTIONS (2)
  - Nausea [Recovering/Resolving]
  - Feeling jittery [Unknown]
